FAERS Safety Report 7415626-0 (Version None)
Quarter: 2011Q2

REPORT INFORMATION
  Report Type: 
  Country: None (occurrence: None)
  Receive Date: 20110414
  Receipt Date: 20110407
  Transmission Date: 20111010
  Serious: Yes (Other)
  Sender: FDA-Public Use
  Company Number: US-JNJFOC-20110403966

PATIENT
  Age: 36 Year
  Sex: Male
  Weight: 72.58 kg

DRUGS (2)
  1. IMODIUM MULTI-SYMPTOM RELIEF [Suspect]
     Route: 048
  2. IMODIUM MULTI-SYMPTOM RELIEF [Suspect]
     Indication: MUSCLE SPASMS
     Route: 048

REACTIONS (3)
  - OCULAR HYPERAEMIA [None]
  - FLUSHING [None]
  - DYSPNOEA [None]
